FAERS Safety Report 5896707-X (Version None)
Quarter: 2008Q3

REPORT INFORMATION
  Report Type: 
  Country: None (occurrence: None)
  Receive Date: 20080924
  Receipt Date: 20080915
  Transmission Date: 20090109
  Serious: Yes (Hospitalization)
  Sender: FDA-Public Use
  Company Number: US-PFIZER INC-A014983

PATIENT
  Age: 57 Year
  Sex: Female

DRUGS (5)
  1. SERTRALINE [Suspect]
     Indication: ILL-DEFINED DISORDER
     Dosage: DAILY DOSE:100MG-FREQ:UNKNOWN
     Route: 048
  2. FLUCONAZOLE [Interacting]
     Indication: ILL-DEFINED DISORDER
     Dosage: FREQ:UNKNOWN
     Route: 048
  3. AMITRIPTYLINE HCL [Interacting]
     Indication: ILL-DEFINED DISORDER
     Dosage: FREQ:UNKNOWN
     Route: 048
  4. LISINOPRIL [Concomitant]
     Route: 048
  5. IRON SUPPLEMENT [Concomitant]
     Route: 048

REACTIONS (12)
  - CHEST DISCOMFORT [None]
  - CORONARY ARTERY DISEASE [None]
  - DRUG INTERACTION [None]
  - DRUG TOXICITY [None]
  - HYPOKALAEMIA [None]
  - LOSS OF CONSCIOUSNESS [None]
  - PNEUMONIA [None]
  - PRESYNCOPE [None]
  - SINUS BRADYCARDIA [None]
  - TORSADE DE POINTES [None]
  - TREMOR [None]
  - VENTRICULAR EXTRASYSTOLES [None]
